FAERS Safety Report 6716881-2 (Version None)
Quarter: 2010Q2

REPORT INFORMATION
  Report Type: 
  Country: None (occurrence: None)
  Receive Date: 20100510
  Receipt Date: 20100428
  Transmission Date: 20101027
  Serious: Yes (Other)
  Sender: FDA-Public Use
  Company Number: JP-JNJFOC-20100402418

PATIENT
  Sex: Male
  Weight: 72 kg

DRUGS (25)
  1. RISPERDAL [Suspect]
     Indication: HALLUCINATION
     Route: 048
  2. RISPERDAL [Suspect]
     Route: 048
  3. RISPERDAL [Suspect]
     Route: 048
  4. RISPERDAL [Suspect]
     Route: 048
  5. RISPERDAL [Suspect]
     Indication: DELUSION
     Route: 048
  6. RISPERDAL [Suspect]
     Route: 048
  7. RISPERDAL [Suspect]
     Route: 048
  8. RISPERDAL [Suspect]
     Route: 048
  9. RISPERIDONE [Suspect]
     Indication: DELUSION
     Route: 048
  10. RISPERIDONE [Suspect]
     Route: 048
  11. RISPERIDONE [Suspect]
     Route: 048
  12. RISPERIDONE [Suspect]
     Indication: HALLUCINATION
     Route: 048
  13. RISPERIDONE [Suspect]
     Route: 048
  14. RISPERIDONE [Suspect]
     Route: 048
  15. LUNAPRON [Suspect]
     Indication: DELUSION
     Route: 048
  16. LUNAPRON [Suspect]
     Route: 048
  17. LUNAPRON [Suspect]
     Indication: HALLUCINATION
     Route: 048
  18. LUNAPRON [Suspect]
     Route: 048
  19. URSO 250 [Concomitant]
     Indication: LIVER DISORDER
     Route: 048
  20. AKINETON [Concomitant]
     Indication: PROPHYLAXIS
     Route: 048
  21. DEPAS [Concomitant]
     Indication: INSOMNIA
     Route: 048
  22. MEDIPEACE [Concomitant]
     Indication: INSOMNIA
     Route: 048
  23. ROHYPNOL [Concomitant]
     Indication: INSOMNIA
     Route: 048
  24. AMLODIN [Concomitant]
     Indication: HYPERTENSION
     Route: 048
  25. AMLODIPINE [Concomitant]
     Indication: HYPERTENSION
     Route: 048

REACTIONS (12)
  - ALANINE AMINOTRANSFERASE INCREASED [None]
  - ASPARTATE AMINOTRANSFERASE INCREASED [None]
  - BLOOD CREATINE PHOSPHOKINASE INCREASED [None]
  - BLOOD LACTATE DEHYDROGENASE INCREASED [None]
  - BRADYKINESIA [None]
  - C-REACTIVE PROTEIN INCREASED [None]
  - DIZZINESS [None]
  - DRUG HYPERSENSITIVITY [None]
  - HALLUCINATION, AUDITORY [None]
  - LIVER DISORDER [None]
  - MALAISE [None]
  - RHABDOMYOLYSIS [None]
